FAERS Safety Report 15346817 (Version 1)
Quarter: 2018Q3

REPORT INFORMATION
  Report Type: Spontaneous
  Country: GB (occurrence: GB)
  Receive Date: 20180904
  Receipt Date: 20180904
  Transmission Date: 20181010
  Serious: Yes (Other)
  Sender: FDA-Public Use
  Company Number: PHHY2018GB088350

PATIENT
  Sex: Male

DRUGS (2)
  1. CEFTRIAXONE. [Suspect]
     Active Substance: CEFTRIAXONE
     Indication: GONORRHOEA
     Dosage: 1 G, UNK
     Route: 030
  2. DOXYCYCLINE. [Suspect]
     Active Substance: DOXYCYCLINE
     Indication: GONORRHOEA
     Dosage: 100 MG, UNK
     Route: 048

REACTIONS (3)
  - Drug resistance [Unknown]
  - Treatment failure [Unknown]
  - Pathogen resistance [Unknown]
